FAERS Safety Report 21221211 (Version 2)
Quarter: 2022Q3

REPORT INFORMATION
  Report Type: Report from Study
  Country: EG (occurrence: EG)
  Receive Date: 20220817
  Receipt Date: 20220824
  Transmission Date: 20221026
  Serious: Yes (Other)
  Sender: FDA-Public Use
  Company Number: EG-BAYER-2022A070034

PATIENT
  Sex: Male

DRUGS (4)
  1. EYLEA [Suspect]
     Active Substance: AFLIBERCEPT
     Indication: Diabetic retinal oedema
     Dosage: UNK RIGHT EYE, SOLUTION FOR INJECTION
     Route: 031
     Dates: start: 2018
  2. EYLEA [Suspect]
     Active Substance: AFLIBERCEPT
     Dosage: FIFTH EYLEA INJECTION, RIGHT EYE, SOLUTION FOR INJECTION
     Route: 031
     Dates: start: 20220526, end: 20220526
  3. EYLEA [Suspect]
     Active Substance: AFLIBERCEPT
     Dosage: 6TH INJECTION RIGHT EYE, SOLUTION FOR INJECTION
     Route: 031
     Dates: start: 2022
  4. INSULIN NOS [Concomitant]
     Active Substance: INSULIN NOS
     Indication: Diabetes mellitus
     Dosage: 40 IU, QD

REACTIONS (5)
  - Visual field defect [Recovered/Resolved with Sequelae]
  - Cataract [Recovered/Resolved]
  - Retinal detachment [Recovered/Resolved with Sequelae]
  - Product dose omission issue [Recovered/Resolved]
  - COVID-19 [Recovered/Resolved]

NARRATIVE: CASE EVENT DATE: 20200101
